FAERS Safety Report 5768595-3 (Version None)
Quarter: 2008Q2

REPORT INFORMATION
  Report Type: 
  Country: None (occurrence: None)
  Receive Date: 20080610
  Receipt Date: 20080527
  Transmission Date: 20081010
  Serious: Yes (Hospitalization)
  Sender: FDA-Public Use
  Company Number: CIP08000983

PATIENT
  Age: 75 Year
  Sex: Female

DRUGS (4)
  1. RISEDRONATE SODIUM [Suspect]
     Dosage: 2.5 MG DAILY, ORAL
     Route: 048
     Dates: start: 20070104, end: 20080528
  2. LANSOPRAZOLE [Concomitant]
  3. MAGMITT (MAGNESIUM OXIDE) [Concomitant]
  4. RIZE /00024801/ (CLOTIAZEPAM) [Concomitant]

REACTIONS (2)
  - FALL [None]
  - FEMORAL NECK FRACTURE [None]
